FAERS Safety Report 6825212-9 (Version None)
Quarter: 2010Q3

REPORT INFORMATION
  Report Type: 
  Country: None (occurrence: None)
  Receive Date: 20100708
  Receipt Date: 20061228
  Transmission Date: 20110219
  Serious: No
  Sender: FDA-Public Use
  Company Number: US-PFIZER INC-2007001155

PATIENT
  Sex: Female
  Weight: 62.6 kg

DRUGS (3)
  1. CHANTIX [Suspect]
     Indication: SMOKING CESSATION THERAPY
     Route: 048
     Dates: start: 20061219
  2. REGLAN [Concomitant]
     Indication: ABDOMINAL DISCOMFORT
  3. MORPHINE [Concomitant]
     Indication: NEOPLASM MALIGNANT

REACTIONS (2)
  - NAUSEA [None]
  - VOMITING [None]
